FAERS Safety Report 5006701-9 (Version None)
Quarter: 2006Q2

REPORT INFORMATION
  Report Type: 
  Country: None (occurrence: None)
  Receive Date: 20060519
  Receipt Date: 20060329
  Transmission Date: 20061013
  Serious: Yes (Disabling)
  Sender: FDA-Public Use
  Company Number: JP-BRISTOL-MYERS SQUIBB COMPANY-13333653

PATIENT
  Age: 69 Year
  Sex: Female

DRUGS (4)
  1. TAXOL [Suspect]
     Indication: LUNG NEOPLASM MALIGNANT
     Route: 041
     Dates: start: 20050930, end: 20060120
  2. PARAPLATIN [Suspect]
     Indication: LUNG NEOPLASM MALIGNANT
     Route: 042
     Dates: start: 20050622, end: 20050720
  3. GEMZAR [Suspect]
     Indication: LUNG NEOPLASM MALIGNANT
     Route: 042
     Dates: start: 20050930, end: 20060120
  4. IRESSA [Concomitant]
     Route: 048
     Dates: start: 20060314

REACTIONS (2)
  - DEAFNESS NEUROSENSORY [None]
  - VISUAL ACUITY REDUCED [None]
